FAERS Safety Report 10145932 (Version 1)
Quarter: 2014Q2

REPORT INFORMATION
  Report Type: Spontaneous
  Country: US (occurrence: US)
  Receive Date: 20140501
  Receipt Date: 20140501
  Transmission Date: 20141212
  Serious: No
  Sender: FDA-Public Use
  Company Number: US-ABBVIE-13P-163-1100280-00

PATIENT
  Sex: 0

DRUGS (2)
  1. CREON [Suspect]
     Indication: PRODUCT USED FOR UNKNOWN INDICATION
  2. CARAFATE [Suspect]
     Indication: PRODUCT USED FOR UNKNOWN INDICATION

REACTIONS (6)
  - Dyspepsia [Not Recovered/Not Resolved]
  - Throat irritation [Unknown]
  - Regurgitation [Unknown]
  - Drug ineffective [Unknown]
  - Gastric varices [Unknown]
  - Portal hypertension [Unknown]
